FAERS Safety Report 10610837 (Version 1)
Quarter: 2014Q4

REPORT INFORMATION
  Report Type: Spontaneous
  Country: US (occurrence: None)
  Receive Date: 20141124
  Receipt Date: 20141124
  Transmission Date: 20150529
  Serious: Yes (Hospitalization, Other)
  Sender: FDA-Public Use
  Company Number: US-ZYDUS-005531

PATIENT
  Age: 30 Year
  Sex: Male

DRUGS (3)
  1. CLINDAMYCIN [Suspect]
     Active Substance: CLINDAMYCIN\CLINDAMYCIN PHOSPHATE
     Indication: JOINT INJURY
  2. TUMS [Suspect]
     Active Substance: CALCIUM CARBONATE
     Indication: GASTROOESOPHAGEAL REFLUX DISEASE
     Dosage: 1.0DAYS
  3. NAPROXEN. [Suspect]
     Active Substance: NAPROXEN
     Indication: JOINT INJURY

REACTIONS (5)
  - Acute kidney injury [None]
  - Milk-alkali syndrome [None]
  - Metabolic alkalosis [None]
  - Hypercalcaemia [None]
  - Hypovolaemia [None]
